FAERS Safety Report 24986733 (Version 3)
Quarter: 2025Q1

REPORT INFORMATION
  Report Type: Spontaneous
  Country: US (occurrence: US)
  Receive Date: 20250219
  Receipt Date: 20250226
  Transmission Date: 20250409
  Serious: Yes (Other)
  Sender: Kenvue
  Company Number: US-KENVUE-20250203293

PATIENT
  Age: 79 Year
  Sex: Male

DRUGS (2)
  1. TYLENOL [Suspect]
     Active Substance: ACETAMINOPHEN
     Indication: Analgesic therapy
     Dosage: 2 DOSAGE FORM, ONCE A DAY (EACH DAY)
     Route: 048
     Dates: start: 20250202, end: 202502
  2. TYLENOL [Suspect]
     Active Substance: ACETAMINOPHEN
     Dosage: 3 DOSAGE FORM,ONCE A DAY, SOMETIMES
     Route: 048
     Dates: start: 202502, end: 202502

REACTIONS (4)
  - Foreign body in throat [Recovered/Resolved]
  - Choking [Recovered/Resolved]
  - Product complaint [Unknown]
  - Off label use [Unknown]

NARRATIVE: CASE EVENT DATE: 20250201
